FAERS Safety Report 8092017-3 (Version None)
Quarter: 2012Q1

REPORT INFORMATION
  Report Type: 
  Country: None (occurrence: None)
  Receive Date: 20120129
  Receipt Date: 20111103
  Transmission Date: 20120608
  Serious: No
  Sender: FDA-Public Use
  Company Number: US-ABBOTT-11P-163-0869101-00

PATIENT
  Sex: Female
  Weight: 67.192 kg

DRUGS (19)
  1. ASPIRIN [Concomitant]
     Indication: PRODUCT USED FOR UNKNOWN INDICATION
  2. VITAMIN D [Concomitant]
     Indication: VITAMIN SUPPLEMENTATION
  3. HYDROCHLOROTHIAZIDE [Concomitant]
     Indication: OEDEMA PERIPHERAL
  4. HUMIRA [Suspect]
     Indication: RHEUMATOID ARTHRITIS
     Dosage: UNDER THE SKIN
     Dates: start: 20111004, end: 20111022
  5. HYDROCHLOROTHIAZIDE [Concomitant]
     Indication: HYPERTENSION
  6. HUMIRA [Suspect]
     Indication: PSORIATIC ARTHROPATHY
  7. METHOTREXATE [Concomitant]
     Indication: PSORIATIC ARTHROPATHY
  8. PREMARIN [Concomitant]
     Indication: HORMONE REPLACEMENT THERAPY
  9. LEUCOVORIN CALCIUM [Concomitant]
     Indication: MINERAL SUPPLEMENTATION
     Dosage: AFTER METHOTREXATE 5 MG
  10. CALCIUM CARBONATE [Concomitant]
     Indication: MINERAL SUPPLEMENTATION
  11. CARVEDILOL [Concomitant]
     Indication: HYPERTENSION
  12. METRONIDAZOLE [Suspect]
     Indication: DIVERTICULITIS
     Dates: start: 20111028
  13. STEROID SHOT [Concomitant]
     Indication: PSORIATIC ARTHROPATHY
     Dosage: IN ANKLE, BEFORE HUMIRA
  14. POTASSIUM CHLORIDE [Concomitant]
     Indication: ELECTROLYTE SUBSTITUTION THERAPY
  15. CALCIUM CARBONATE [Concomitant]
     Indication: MINERAL SUPPLEMENTATION
  16. SYNTHROID [Concomitant]
     Indication: HYPOTHYROIDISM
  17. ASCORBIC ACID [Concomitant]
     Indication: VITAMIN SUPPLEMENTATION
  18. VALTURNA [Concomitant]
     Indication: HYPERTENSION
  19. CIPROFLOXACIN [Suspect]
     Indication: DIVERTICULITIS
     Dates: start: 20111028

REACTIONS (12)
  - ABDOMINAL DISTENSION [None]
  - DIARRHOEA [None]
  - HAEMATOCHEZIA [None]
  - HYPERHIDROSIS [None]
  - FLATULENCE [None]
  - ABDOMINAL PAIN [None]
  - DIVERTICULITIS [None]
  - INJECTION SITE PAIN [None]
  - ASTHENIA [None]
  - GASTROINTESTINAL SOUNDS ABNORMAL [None]
  - MUCOUS STOOLS [None]
  - PYREXIA [None]
